FAERS Safety Report 5102289-2 (Version None)
Quarter: 2006Q3

REPORT INFORMATION
  Report Type: 
  Country: None (occurrence: None)
  Receive Date: 20060731
  Receipt Date: 20060526
  Transmission Date: 20061208
  Serious: No
  Sender: FDA-Public Use
  Company Number: 2006PV014556

PATIENT
  Age: 51 Year
  Sex: Female
  Weight: 110.2241 kg

DRUGS (18)
  1. BYETTA [Suspect]
     Indication: DIABETES MELLITUS NON-INSULIN-DEPENDENT
     Dosage: SEE IMAGE
     Route: 058
     Dates: start: 20060501, end: 20060501
  2. BYETTA [Suspect]
     Indication: DIABETES MELLITUS NON-INSULIN-DEPENDENT
     Dosage: SEE IMAGE
     Route: 058
     Dates: start: 20060505, end: 20060501
  3. BYETTA [Suspect]
     Indication: DIABETES MELLITUS NON-INSULIN-DEPENDENT
     Dosage: SEE IMAGE
     Route: 058
     Dates: start: 20060517, end: 20060522
  4. BYETTA [Suspect]
     Indication: DIABETES MELLITUS NON-INSULIN-DEPENDENT
     Dosage: SEE IMAGE
     Route: 058
     Dates: start: 20060523
  5. HUMULIN N [Concomitant]
  6. HUMULIN 70/30 [Concomitant]
  7. METHADONE [Concomitant]
  8. CYMBALTA [Concomitant]
  9. TOPAMAX [Concomitant]
  10. ASPIRIN [Concomitant]
  11. FUROSEMIDE [Concomitant]
  12. METFORMIN HCL [Concomitant]
  13. DILTIAZEM HCL [Concomitant]
  14. AVANDIA [Concomitant]
  15. K-DUR 10 [Concomitant]
  16. CELEXA [Concomitant]
  17. ZONEGRAN [Concomitant]
  18. AMITRIPTYLINE HCL [Concomitant]

REACTIONS (8)
  - BLOOD GLUCOSE INCREASED [None]
  - CARDIAC DISORDER [None]
  - DIASTOLIC DYSFUNCTION [None]
  - INSOMNIA [None]
  - MEDICATION ERROR [None]
  - NAUSEA [None]
  - TACHYCARDIA [None]
  - THERAPEUTIC RESPONSE UNEXPECTED [None]
